FAERS Safety Report 4606710-5 (Version None)
Quarter: 2005Q1

REPORT INFORMATION
  Report Type: 
  Country: None (occurrence: None)
  Receive Date: 20050311
  Receipt Date: 20050225
  Transmission Date: 20050727
  Serious: Yes (Death)
  Sender: FDA-Public Use
  Company Number: 2005S1000820

PATIENT
  Age: 74 Year
  Sex: Male

DRUGS (3)
  1. CLOZAPINE [Suspect]
     Dosage: 100 MG;QID;PO
     Route: 048
     Dates: start: 20031105
  2. CLONAZEPAM [Concomitant]
  3. HYTRIN [Concomitant]

REACTIONS (1)
  - DEATH [None]
